FAERS Safety Report 13702258 (Version 1)
Quarter: 2017Q2

REPORT INFORMATION
  Report Type: Report from Study
  Country: None (occurrence: US)
  Receive Date: 20170629
  Receipt Date: 20170629
  Transmission Date: 20170830
  Serious: No
  Sender: FDA-Public Use
  Company Number: US-IPSEN BIOPHARMACEUTICALS, INC.-2015-4150

PATIENT
  Age: 13 Year
  Sex: Female
  Weight: 29.5 kg

DRUGS (3)
  1. INCRELEX [Suspect]
     Active Substance: MECASERMIN
     Indication: BODY HEIGHT BELOW NORMAL
     Route: 058
     Dates: start: 20150303
  2. INCRELEX [Suspect]
     Active Substance: MECASERMIN
     Indication: PRODUCT USE IN UNAPPROVED INDICATION
  3. INCRELEX [Suspect]
     Active Substance: MECASERMIN
     Indication: GROWTH FAILURE

REACTIONS (3)
  - Hunger [Unknown]
  - Pruritus [None]
  - Somnolence [Unknown]

NARRATIVE: CASE EVENT DATE: 201503
